FAERS Safety Report 8306396-2 (Version None)
Quarter: 2012Q2

REPORT INFORMATION
  Report Type: 
  Country: None (occurrence: None)
  Receive Date: 20120423
  Receipt Date: 20120416
  Transmission Date: 20120825
  Serious: Yes (Other)
  Sender: FDA-Public Use
  Company Number: US-ELI_LILLY_AND_COMPANY-US201204006145

PATIENT
  Sex: Male

DRUGS (2)
  1. HUMALOG [Suspect]
     Indication: DIABETES MELLITUS
     Dosage: UNK, QID
     Dates: start: 20090101
  2. INSULIN [Concomitant]
     Dosage: UNK

REACTIONS (3)
  - DRUG DOSE OMISSION [None]
  - RETINOPATHY [None]
  - RETINAL DETACHMENT [None]
